FAERS Safety Report 5678954-5 (Version None)
Quarter: 2008Q1

REPORT INFORMATION
  Report Type: 
  Country: None (occurrence: None)
  Receive Date: 20080325
  Receipt Date: 20080314
  Transmission Date: 20080703
  Serious: Yes (Other)
  Sender: FDA-Public Use
  Company Number: AU-AMGEN-US269687

PATIENT
  Sex: Male

DRUGS (3)
  1. PANITUMUMAB [Suspect]
     Indication: SQUAMOUS CELL CARCINOMA
     Route: 042
     Dates: start: 20070928, end: 20080222
  2. CISPLATIN [Concomitant]
  3. FLUOROURACIL [Concomitant]

REACTIONS (1)
  - ANAEMIA [None]
